FAERS Safety Report 7893072-3 (Version None)
Quarter: 2011Q4

REPORT INFORMATION
  Report Type: 
  Country: None (occurrence: None)
  Receive Date: 20111104
  Receipt Date: 20111103
  Transmission Date: 20120403
  Serious: Yes (Other)
  Sender: FDA-Public Use
  Company Number: US-PFIZER INC-2011269620

PATIENT
  Sex: Female
  Weight: 136 kg

DRUGS (5)
  1. CHANTIX [Suspect]
     Dosage: TWO TIMES DAILY
     Route: 048
     Dates: start: 20111001, end: 20111001
  2. CHANTIX [Suspect]
     Dosage: ONE TABLET IN THE MORNING AND WAS SPLITTING THE TABLETS TAKING HALF IN THE EVENING
     Route: 048
     Dates: start: 20111001
  3. ABILIFY [Concomitant]
     Dosage: 25 MG, DAILY
     Dates: start: 20110101
  4. CHANTIX [Suspect]
     Indication: SMOKING CESSATION THERAPY
     Dosage: UNK
     Route: 048
     Dates: start: 20111001, end: 20111001
  5. ZOLOFT [Concomitant]
     Dosage: 100 MG, DAILY
     Dates: start: 20110101

REACTIONS (3)
  - BLOOD POTASSIUM DECREASED [None]
  - HALLUCINATION [None]
  - NIGHTMARE [None]
